FAERS Safety Report 8370486-9 (Version None)
Quarter: 2012Q2

REPORT INFORMATION
  Report Type: 
  Country: None (occurrence: None)
  Receive Date: 20120518
  Receipt Date: 20120515
  Transmission Date: 20120825
  Serious: Yes (Death, Hospitalization, Other)
  Sender: FDA-Public Use
  Company Number: US-ASTRAZENECA-2010SE32027

PATIENT
  Age: 68 Year
  Sex: Male
  Weight: 113.4 kg

DRUGS (9)
  1. TOPROL-XL [Suspect]
     Indication: BLOOD PRESSURE MANAGEMENT
     Route: 048
     Dates: start: 19990101, end: 20120330
  2. SEROQUEL [Suspect]
     Route: 048
     Dates: start: 20040101, end: 20120330
  3. SEROQUEL [Suspect]
     Route: 048
     Dates: start: 20040101, end: 20120330
  4. TWENTY SIX DRUGS [Concomitant]
  5. SEROQUEL [Suspect]
     Indication: DEPRESSION
     Route: 048
  6. SEROQUEL [Suspect]
     Route: 048
     Dates: start: 20040101, end: 20120330
  7. INSULIN [Concomitant]
     Indication: DIABETES MELLITUS
  8. SEROQUEL [Suspect]
     Indication: RESTLESSNESS
     Route: 048
  9. SEROQUEL [Suspect]
     Indication: MOOD SWINGS
     Route: 048

REACTIONS (17)
  - CARDIAC FAILURE CONGESTIVE [None]
  - MULTIPLE FRACTURES [None]
  - SPEECH DISORDER [None]
  - MALAISE [None]
  - FALL [None]
  - BIPOLAR DISORDER [None]
  - MOOD SWINGS [None]
  - MYOCARDIAL INFARCTION [None]
  - SUBARACHNOID HAEMORRHAGE [None]
  - ROAD TRAFFIC ACCIDENT [None]
  - CRANIOCEREBRAL INJURY [None]
  - ANGER [None]
  - LUNG DISORDER [None]
  - BRADYPHRENIA [None]
  - SUBDURAL HAEMATOMA [None]
  - AMNESIA [None]
  - CONDITION AGGRAVATED [None]
